FAERS Safety Report 26067922 (Version 1)
Quarter: 2025Q4

REPORT INFORMATION
  Report Type: Spontaneous
  Country: US (occurrence: US)
  Receive Date: 20251120
  Receipt Date: 20251120
  Transmission Date: 20260118
  Serious: Yes (Other)
  Sender: DR REDDYS
  Company Number: None

PATIENT
  Age: 49 Year
  Sex: Female

DRUGS (5)
  1. HEPARIN [Suspect]
     Active Substance: HEPARIN SODIUM
     Indication: Cardiac ventricular thrombosis
     Route: 042
  2. METHOTREXATE [Concomitant]
     Active Substance: METHOTREXATE
     Indication: Transitional cell carcinoma
     Dosage: 4 CYCLES
  3. VINBLASTINE [Concomitant]
     Active Substance: VINBLASTINE
     Indication: Transitional cell carcinoma
     Dosage: 4 CYCLES
  4. DOXORUBICIN [Concomitant]
     Active Substance: DOXORUBICIN
     Indication: Transitional cell carcinoma
     Dosage: 4 CYCLES
  5. CISPLATIN [Concomitant]
     Active Substance: CISPLATIN
     Indication: Transitional cell carcinoma
     Dosage: 4 CYCLES

REACTIONS (2)
  - Thrombocytopenia [Unknown]
  - Vaginal haemorrhage [Unknown]
